FAERS Safety Report 12614171 (Version 1)
Quarter: 2016Q3

REPORT INFORMATION
  Report Type: Spontaneous
  Country: US (occurrence: None)
  Receive Date: 20160801
  Receipt Date: 20160801
  Transmission Date: 20161109
  Serious: Yes (Other)
  Sender: FDA-Public Use
  Company Number: None

PATIENT
  Age: 48 Year
  Sex: Male
  Weight: 83.92 kg

DRUGS (10)
  1. PANTOPRAZOLE [Suspect]
     Active Substance: PANTOPRAZOLE SODIUM
  2. RISPERAQDONE [Concomitant]
  3. CHAMOMILE TEA [Concomitant]
     Active Substance: MATRICARIA RECUTITA
  4. ACETAMINOPHEN. [Concomitant]
     Active Substance: ACETAMINOPHEN
  5. TIZANIDINE. [Concomitant]
     Active Substance: TIZANIDINE
  6. SIMVASTATIN. [Suspect]
     Active Substance: SIMVASTATIN
  7. CARBAMAZEPINE. [Concomitant]
     Active Substance: CARBAMAZEPINE
  8. DULOXETINE. [Concomitant]
     Active Substance: DULOXETINE
  9. TRAMADOL. [Concomitant]
     Active Substance: TRAMADOL
  10. NORTRIPTYLINE [Concomitant]
     Active Substance: NORTRIPTYLINE

REACTIONS (7)
  - Headache [None]
  - Abdominal discomfort [None]
  - Abdominal distension [None]
  - Nausea [None]
  - Neck pain [None]
  - Vomiting [None]
  - Haematemesis [None]

NARRATIVE: CASE EVENT DATE: 20160729
